FAERS Safety Report 12607908 (Version 2)
Quarter: 2016Q3

REPORT INFORMATION
  Report Type: Spontaneous
  Country: SE (occurrence: SE)
  Receive Date: 20160729
  Receipt Date: 20160805
  Transmission Date: 20161109
  Serious: Yes (Hospitalization, Other)
  Sender: FDA-Public Use
  Company Number: SE-GILEAD-2016-0225155

PATIENT
  Age: 57 Year
  Sex: Female

DRUGS (4)
  1. VAGIFEM [Concomitant]
     Active Substance: ESTRADIOL
  2. STILNOCT [Concomitant]
     Active Substance: ZOLPIDEM TARTRATE
  3. SOBRIL [Concomitant]
     Active Substance: OXAZEPAM
  4. HARVONI [Suspect]
     Active Substance: LEDIPASVIR\SOFOSBUVIR
     Indication: HEPATITIS C
     Dosage: 1 DF, UNK
     Route: 048
     Dates: start: 201508, end: 201512

REACTIONS (1)
  - Inappropriate antidiuretic hormone secretion [Recovered/Resolved]

NARRATIVE: CASE EVENT DATE: 20160607
